FAERS Safety Report 5689655-1 (Version None)
Quarter: 2008Q1

REPORT INFORMATION
  Report Type: 
  Country: None (occurrence: None)
  Receive Date: 20080328
  Receipt Date: 20080317
  Transmission Date: 20080703
  Serious: Yes (Other)
  Sender: FDA-Public Use
  Company Number: 2008-01877

PATIENT
  Age: 38 Year
  Sex: Female

DRUGS (2)
  1. TRELSTAR DEPOT [Suspect]
     Indication: INFERTILITY
     Dosage: 0.1 MG, DAILY, INTRAMUSCULAR
     Route: 030
     Dates: start: 20080227, end: 20080308
  2. PULIKANG [Concomitant]

REACTIONS (2)
  - RETINAL HAEMORRHAGE [None]
  - RETINAL OEDEMA [None]
